FAERS Safety Report 23995968 (Version 4)
Quarter: 2024Q3

REPORT INFORMATION
  Report Type: Report from Study
  Country: PR (occurrence: PR)
  Receive Date: 20240620
  Receipt Date: 20240801
  Transmission Date: 20241017
  Serious: Yes (Hospitalization)
  Sender: PFIZER
  Company Number: PR-PFIZER INC-202400093728

PATIENT
  Age: 89 Year
  Sex: Female

DRUGS (17)
  1. IBRANCE [Suspect]
     Active Substance: PALBOCICLIB
     Dosage: 125 MG, CYCLIC (21 DAYS, 7 DAYS OFF)
     Route: 048
     Dates: start: 20240403
  2. IBRANCE [Suspect]
     Active Substance: PALBOCICLIB
     Dosage: 125 MG, CYCLIC (21 DAYS, 7 DAYS OFF)
  3. IBRANCE [Suspect]
     Active Substance: PALBOCICLIB
     Dosage: 125 MG, CYCLIC (21 DAYS, 7 DAYS OFF)
     Route: 048
     Dates: start: 20240403, end: 2024
  4. IBRANCE [Suspect]
     Active Substance: PALBOCICLIB
     Dosage: 100 MGS PO (ORALLY) TABLET DAILY 21 DAYS ON + 7 DAYS OFF
     Route: 048
     Dates: start: 2024, end: 20240706
  5. ANASTROZOLE [Suspect]
     Active Substance: ANASTROZOLE
     Dosage: UNK
  6. AMLODIPINE [Concomitant]
     Active Substance: AMLODIPINE BESYLATE
     Dosage: UNK
  7. EZETIMIBE [Concomitant]
     Active Substance: EZETIMIBE
     Dosage: UNK
  8. MECLIZINE [Concomitant]
     Active Substance: MECLIZINE HYDROCHLORIDE
     Dosage: UNK
  9. PENTOXIFYLLINE [Concomitant]
     Active Substance: PENTOXIFYLLINE
     Dosage: ER
  10. GABAPENTIN [Concomitant]
     Active Substance: GABAPENTIN
     Dosage: UNK
  11. ARIMIDEX [Concomitant]
     Active Substance: ANASTROZOLE
     Dosage: UNK
     Route: 048
  12. NAPROXEN [Concomitant]
     Active Substance: NAPROXEN
     Dosage: UNK
  13. OMEPRAZOLE [Concomitant]
     Active Substance: OMEPRAZOLE
     Dosage: UNK
  14. SIMVASTATIN [Concomitant]
     Active Substance: SIMVASTATIN
     Dosage: UNK
  15. ONDANSETRON [Concomitant]
     Active Substance: ONDANSETRON
     Dosage: UNK
  16. CALTRATE WITH VITAMIN D [Concomitant]
     Active Substance: CALCIUM CARBONATE\CHOLECALCIFEROL
     Dosage: UNK
  17. MIRALAX [Concomitant]
     Active Substance: POLYETHYLENE GLYCOL 3350
     Dosage: UNK

REACTIONS (17)
  - Haemorrhage [Unknown]
  - Nausea [Not Recovered/Not Resolved]
  - Abdominal discomfort [Not Recovered/Not Resolved]
  - Diarrhoea [Recovered/Resolved]
  - Platelet count decreased [Not Recovered/Not Resolved]
  - Contusion [Not Recovered/Not Resolved]
  - Constipation [Recovering/Resolving]
  - Pruritus [Recovered/Resolved]
  - Rash [Unknown]
  - Pain [Unknown]
  - Dry skin [Unknown]
  - Fatigue [Unknown]
  - Oedema peripheral [Unknown]
  - Glossodynia [Unknown]
  - Poor quality sleep [Not Recovered/Not Resolved]
  - Mobility decreased [Recovering/Resolving]
  - Neoplasm progression [Unknown]

NARRATIVE: CASE EVENT DATE: 20240101
